FAERS Safety Report 5146570-X (Version None)
Quarter: 2006Q4

REPORT INFORMATION
  Report Type: 
  Country: None (occurrence: None)
  Receive Date: 20060911
  Receipt Date: 20060601
  Transmission Date: 20070319
  Serious: No
  Sender: FDA-Public Use
  Company Number: IND-AE-06-SAN-023

PATIENT
  Age: 73 Year
  Sex: Male
  Weight: 81.6475 kg

DRUGS (8)
  1. SANCTURA [Suspect]
     Indication: POLLAKIURIA
     Dosage: 20 MG -BID-ORAL
     Route: 048
  2. VESICARE [Suspect]
     Indication: POLLAKIURIA
     Dosage: UNK
  3. WELLBUTRIN [Concomitant]
  4. HYDROCHLOROTHIAZIDE [Concomitant]
  5. ADALAT [Concomitant]
  6. REMERON [Concomitant]
  7. SIMVASTATIN [Concomitant]
  8. COSOPT EYE DROPS [Concomitant]

REACTIONS (1)
  - BLOOD PRESSURE INCREASED [None]
